FAERS Safety Report 11113876 (Version 1)
Quarter: 2015Q2

REPORT INFORMATION
  Report Type: Spontaneous
  Country: DE (occurrence: DE)
  Receive Date: 20150514
  Receipt Date: 20150514
  Transmission Date: 20150821
  Serious: Yes (Other)
  Sender: FDA-Public Use
  Company Number: DE-PFIZER INC-2015157563

PATIENT
  Age: 39 Year
  Sex: Male
  Weight: 70 kg

DRUGS (1)
  1. SPALT SCHMERZTABLETTEN [Suspect]
     Active Substance: ACETAMINOPHEN\ASPIRIN
     Indication: HEADACHE
     Dosage: 3X1
     Route: 048
     Dates: start: 20140216

REACTIONS (2)
  - Heart rate increased [Unknown]
  - Macular oedema [Unknown]

NARRATIVE: CASE EVENT DATE: 20140218
